FAERS Safety Report 9360575 (Version 1)
Quarter: 2013Q2

REPORT INFORMATION
  Report Type: Spontaneous
  Country: US (occurrence: US)
  Receive Date: 20130621
  Receipt Date: 20130621
  Transmission Date: 20140414
  Serious: No
  Sender: FDA-Public Use
  Company Number: US-US-EMD SERONO, INC.-7029641

PATIENT
  Sex: Female

DRUGS (5)
  1. REBIF [Suspect]
     Indication: MULTIPLE SCLEROSIS
     Route: 058
     Dates: start: 201011, end: 201012
  2. REBIF [Suspect]
     Route: 058
     Dates: start: 201012
  3. NORVASC [Concomitant]
  4. ZOLOFT [Concomitant]
  5. NORTRIPTYLINE [Concomitant]

REACTIONS (6)
  - Dyspnoea [Unknown]
  - Mood swings [Unknown]
  - Abdominal pain upper [Unknown]
  - Abdominal pain upper [Unknown]
  - Influenza like illness [Unknown]
  - Injection site reaction [Unknown]
